FAERS Safety Report 14424575 (Version 3)
Quarter: 2018Q1

REPORT INFORMATION
  Report Type: Spontaneous
  Country: DE (occurrence: DE)
  Receive Date: 20180123
  Receipt Date: 20180209
  Transmission Date: 20180509
  Serious: Yes (Other)
  Sender: FDA-Public Use
  Company Number: DE-UCBSA-2017049397

PATIENT
  Age: 8 Year
  Sex: Male
  Weight: 31 kg

DRUGS (3)
  1. LEVETIRACETAM UCB [Suspect]
     Active Substance: LEVETIRACETAM
     Indication: IDIOPATHIC GENERALISED EPILEPSY
     Dosage: 100 MG/ML (STARTING WITH 1 MG TWICE DAILY AND THEN 3 MG TWICE DAILY)
     Dates: start: 20171205
  2. LEVETIRACETAM UCB [Suspect]
     Active Substance: LEVETIRACETAM
     Dosage: 4 ML, 2X/DAY (BID)
  3. LEVETIRACETAM UCB [Suspect]
     Active Substance: LEVETIRACETAM
     Dosage: 28.5 MG/KG, UNK (2 X 500 MG)

REACTIONS (9)
  - Petit mal epilepsy [Not Recovered/Not Resolved]
  - Irritability [Unknown]
  - Mood swings [Unknown]
  - Generalised tonic-clonic seizure [Unknown]
  - Akathisia [Not Recovered/Not Resolved]
  - Aggression [Not Recovered/Not Resolved]
  - Off label use [Unknown]
  - Mental disorder [Not Recovered/Not Resolved]
  - Epilepsy [Unknown]

NARRATIVE: CASE EVENT DATE: 201712
